FAERS Safety Report 8122419-8 (Version None)
Quarter: 2012Q1

REPORT INFORMATION
  Report Type: 
  Country: None (occurrence: None)
  Receive Date: 20120208
  Receipt Date: 20120131
  Transmission Date: 20120608
  Serious: Yes (Other)
  Sender: FDA-Public Use
  Company Number: BE-GLAXOSMITHKLINE-B0779631A

PATIENT

DRUGS (1)
  1. MALARONE [Suspect]
     Indication: MALARIA PROPHYLAXIS
     Route: 048
     Dates: start: 20111224, end: 20120102

REACTIONS (5)
  - PANIC ATTACK [None]
  - DRY SKIN [None]
  - RASH GENERALISED [None]
  - SKIN LESION [None]
  - ECZEMA [None]
